FAERS Safety Report 5191425-8 (Version None)
Quarter: 2006Q4

REPORT INFORMATION
  Report Type: 
  Country: None (occurrence: None)
  Receive Date: 20061226
  Receipt Date: 20061012
  Transmission Date: 20070319
  Serious: Yes (Other)
  Sender: FDA-Public Use
  Company Number: 2006GB01844

PATIENT
  Age: 45 Year
  Sex: Female
  Weight: 110 kg

DRUGS (2)
  1. ZOLADEX [Suspect]
     Indication: MENOPAUSAL SYMPTOMS
     Route: 058
     Dates: start: 20060926
  2. HRT [Concomitant]

REACTIONS (6)
  - CHEST PAIN [None]
  - DYSPNOEA [None]
  - HYPERVENTILATION [None]
  - PALPITATIONS [None]
  - PANIC ATTACK [None]
  - PARAESTHESIA [None]
